FAERS Safety Report 15421156 (Version 1)
Quarter: 2018Q3

REPORT INFORMATION
  Report Type: Spontaneous
  Country: US (occurrence: US)
  Receive Date: 20180924
  Receipt Date: 20180924
  Transmission Date: 20181010
  Serious: No
  Sender: FDA-Public Use
  Company Number: US-ALLERGAN-1755759US

PATIENT
  Sex: Female
  Weight: 57.14 kg

DRUGS (1)
  1. LINZESS [Suspect]
     Active Substance: LINACLOTIDE
     Indication: CONSTIPATION
     Dosage: 290 ?G, QD
     Route: 048
     Dates: start: 20151125

REACTIONS (5)
  - Off label use [Unknown]
  - Dehydration [Unknown]
  - Malaise [Unknown]
  - Drug intolerance [Unknown]
  - Diarrhoea [Unknown]
